FAERS Safety Report 8487494-X (Version None)
Quarter: 2012Q2

REPORT INFORMATION
  Report Type: 
  Country: None (occurrence: None)
  Receive Date: 20120627
  Receipt Date: 20120612
  Transmission Date: 20120825
  Serious: Yes (Other)
  Sender: FDA-Public Use
  Company Number: AXC-2012-000251

PATIENT
  Age: 44 Year
  Sex: Male

DRUGS (5)
  1. NITROGLYN 2% OINTMENT [Suspect]
     Indication: ANAL FISSURE
     Dosage: TOPICAL
     Route: 061
     Dates: start: 20120513, end: 20120515
  2. ACETYLSALICYLIC ACID SRT [Concomitant]
  3. RAMIPRIL [Concomitant]
  4. BUPROPION HCL [Concomitant]
  5. ALLOPURINOL [Concomitant]

REACTIONS (3)
  - PALPITATIONS [None]
  - EXTRASYSTOLES [None]
  - HEADACHE [None]
